FAERS Safety Report 18267215 (Version 1)
Quarter: 2020Q3

REPORT INFORMATION
  Report Type: Spontaneous
  Country: US (occurrence: US)
  Receive Date: 20200914
  Receipt Date: 20200914
  Transmission Date: 20201103
  Serious: Yes (Hospitalization)
  Sender: FDA-Public Use
  Company Number: None

PATIENT
  Age: 82 Year
  Sex: Male

DRUGS (12)
  1. HYDRALAZINE [Concomitant]
     Active Substance: HYDRALAZINE HYDROCHLORIDE
  2. ALLOPURINOL. [Concomitant]
     Active Substance: ALLOPURINOL
  3. TAMSULOSIN [Concomitant]
     Active Substance: TAMSULOSIN
  4. CARVEDILOL. [Concomitant]
     Active Substance: CARVEDILOL
  5. IRON [Concomitant]
     Active Substance: IRON
  6. MYCOPHENOLATE [Concomitant]
     Active Substance: MYCOPHENOLIC ACID
  7. NIFEDIPINE. [Concomitant]
     Active Substance: NIFEDIPINE
  8. FUROSEMIDE. [Concomitant]
     Active Substance: FUROSEMIDE
  9. ATORVASTATIN [Concomitant]
     Active Substance: ATORVASTATIN
  10. FAMOTIDINE. [Concomitant]
     Active Substance: FAMOTIDINE
  11. PRESERVISION AREDS [Concomitant]
     Active Substance: MINERALS\VITAMINS
  12. CYCLOSPORINE MODIFIED [Suspect]
     Active Substance: CYCLOSPORINE
     Indication: PROPHYLAXIS AGAINST TRANSPLANT REJECTION
     Dosage: ?          QUANTITY:25 MG MILLIGRAM(S);?
     Route: 048
     Dates: start: 20011130

REACTIONS (3)
  - Urinary retention [None]
  - Oedema [None]
  - Renal transplant failure [None]

NARRATIVE: CASE EVENT DATE: 20200903
